FAERS Safety Report 5094971-0 (Version None)
Quarter: 2006Q3

REPORT INFORMATION
  Report Type: 
  Country: None (occurrence: None)
  Receive Date: 20060728
  Receipt Date: 20060426
  Transmission Date: 20061208
  Serious: No
  Sender: FDA-Public Use
  Company Number: COT_0511_2006

PATIENT
  Age: 51 Year
  Sex: Male
  Weight: 68.0396 kg

DRUGS (18)
  1. VENTAVIS [Suspect]
     Indication: PULMONARY HYPERTENSION
     Dosage: 5 MCG 6XD IH
     Route: 055
     Dates: start: 20060419
  2. SILDENAFIL [Concomitant]
  3. NEORAL [Concomitant]
  4. PREDNISONE TAB [Concomitant]
  5. CELLCEPT [Concomitant]
  6. HYDRALAZINE [Concomitant]
  7. ISORDIL [Concomitant]
  8. NORVASC [Concomitant]
  9. PRAVACHOL [Concomitant]
  10. ASPIRIN [Concomitant]
  11. PROTONIX [Concomitant]
  12. BACTRIM [Concomitant]
  13. VALCYTE [Concomitant]
  14. CALCIUM GLUCONATE [Concomitant]
  15. MAGNESIUM [Concomitant]
  16. IRON [Concomitant]
  17. FOLATE [Concomitant]
  18. COLACE [Concomitant]

REACTIONS (2)
  - NAUSEA [None]
  - THROAT IRRITATION [None]
